FAERS Safety Report 11220712 (Version 2)
Quarter: 2015Q3

REPORT INFORMATION
  Report Type: Spontaneous
  Country: PT (occurrence: PT)
  Receive Date: 20150626
  Receipt Date: 20150721
  Transmission Date: 20151125
  Serious: Yes (Other)
  Sender: FDA-Public Use
  Company Number: PT-AUROBINDO-AUR-APL-2015-05308

PATIENT
  Age: 35 Year
  Sex: Male

DRUGS (2)
  1. PEGYLATED INTERFERON ALPHA NOS [Suspect]
     Active Substance: PEGINTERFERON ALFA-2A OR PEGINTERFERON ALFA-2B
     Indication: HEPATITIS C VIRUS TEST POSITIVE
     Dosage: 180 ?G, EVERY WEEK
     Route: 065
  2. RIBAVIRIN. [Suspect]
     Active Substance: RIBAVIRIN
     Indication: HEPATITIS C VIRUS TEST POSITIVE
     Dosage: 12000 MG, DAILY
     Route: 065

REACTIONS (8)
  - Neuropathy peripheral [Unknown]
  - Cryoglobulinaemia [Unknown]
  - Arthralgia [Unknown]
  - Rheumatoid factor increased [Unknown]
  - Ulcer [Recovered/Resolved]
  - Hypersensitivity vasculitis [Unknown]
  - Complement factor C4 decreased [Unknown]
  - Viraemia [Unknown]
